FAERS Safety Report 8494961-1 (Version None)
Quarter: 2012Q2

REPORT INFORMATION
  Report Type: 
  Country: None (occurrence: None)
  Receive Date: 20120405
  Receipt Date: 20100518
  Transmission Date: 20120825
  Serious: Yes (Disabling)
  Sender: FDA-Public Use
  Company Number: PHHY2010US26316

PATIENT
  Age: 75 Year
  Sex: Female
  Weight: 53.1 kg

DRUGS (1)
  1. RECLAST [Suspect]
     Indication: OSTEOPOROSIS
     Dosage: IV INFUSION
     Route: 042
     Dates: start: 20100401

REACTIONS (3)
  - BONE PAIN [None]
  - PAIN [None]
  - MYALGIA [None]
